FAERS Safety Report 18617742 (Version 1)
Quarter: 2020Q4

REPORT INFORMATION
  Report Type: Spontaneous
  Country: IN (occurrence: IN)
  Receive Date: 20201215
  Receipt Date: 20201215
  Transmission Date: 20210114
  Serious: No
  Sender: FDA-Public Use
  Company Number: IN-LUPIN LIMITED-2020-04232

PATIENT
  Age: 31 Year

DRUGS (1)
  1. TELISTA-H [Suspect]
     Active Substance: HYDROCHLOROTHIAZIDE\TELMISARTAN
     Indication: HYPERTENSION
     Dosage: UNK, QD (FROM 6 MONTHS)
     Route: 065

REACTIONS (2)
  - Headache [Unknown]
  - Alopecia [Unknown]
